FAERS Safety Report 9506956 (Version 3)
Quarter: 2013Q3

REPORT INFORMATION
  Report Type: Spontaneous
  Country: FR (occurrence: FR)
  Receive Date: 20130909
  Receipt Date: 20130920
  Transmission Date: 20140515
  Serious: Yes (Hospitalization)
  Sender: FDA-Public Use
  Company Number: FR-MERCK-1308FRA014901

PATIENT
  Age: 29 Year
  Sex: Female

DRUGS (13)
  1. ZOLINZA [Suspect]
     Indication: PRODUCT USED FOR UNKNOWN INDICATION
     Dosage: 100 MG, BID
     Route: 048
     Dates: start: 20130506, end: 20130513
  2. ZOLINZA [Suspect]
     Dosage: UNK
     Route: 048
     Dates: start: 201305, end: 201307
  3. OXYCONTIN [Suspect]
     Indication: PRODUCT USED FOR UNKNOWN INDICATION
     Dosage: 40 MG, BID
     Route: 048
     Dates: end: 20130512
  4. EFFENTORA [Suspect]
     Indication: PRODUCT USED FOR UNKNOWN INDICATION
     Dosage: 400 MICROGRAM, Q4H
     Route: 002
     Dates: end: 20130515
  5. SEROPLEX [Concomitant]
     Dosage: UNK
     Route: 048
  6. GUTRON [Concomitant]
     Dosage: UNK
     Route: 048
  7. ASCOFER (FERROUS ASCORBATE) [Concomitant]
     Dosage: UNK
     Route: 048
  8. MESTINON [Concomitant]
     Dosage: UNK
     Route: 048
  9. SPIRIVA [Concomitant]
     Dosage: UNK
     Route: 055
  10. XANAX [Concomitant]
     Dosage: UNK
     Route: 048
  11. EUPANTOL [Concomitant]
     Dosage: UNK
     Route: 048
  12. STILNOX [Concomitant]
     Dosage: UNK
     Route: 048
  13. COLIMYCINE (COLISTIMETHATE SODIUM) [Concomitant]
     Route: 055

REACTIONS (1)
  - Small intestinal obstruction [Recovered/Resolved]
